FAERS Safety Report 9152096 (Version 1)
Quarter: 2013Q1

REPORT INFORMATION
  Report Type: Spontaneous
  Country: US (occurrence: US)
  Receive Date: 20130308
  Receipt Date: 20130308
  Transmission Date: 20140127
  Serious: Yes (Life-Threatening, Hospitalization, Other)
  Sender: FDA-Public Use
  Company Number: US-BAYER-2013-026895

PATIENT
  Age: 62 Year
  Sex: Female

DRUGS (2)
  1. ALEVE CAPLET/TABLET,MIDOL EXTENDED RELIEF CAPLET [Suspect]
     Indication: CHEST PAIN
     Dosage: 2 DF, UNK
  2. ANTIHYPERTENSIVES [Concomitant]

REACTIONS (6)
  - Loss of consciousness [None]
  - Myocardial infarction [None]
  - Carotid artery occlusion [None]
  - Electrocardiogram abnormal [None]
  - Chest pain [None]
  - Off label use [None]
